FAERS Safety Report 9767204 (Version 1)
Quarter: 2013Q4

REPORT INFORMATION
  Report Type: Spontaneous
  Country: US (occurrence: US)
  Receive Date: 20131217
  Receipt Date: 20131217
  Transmission Date: 20140711
  Serious: No
  Sender: FDA-Public Use
  Company Number: US-GLAXOSMITHKLINE-A1043375A

PATIENT
  Sex: Female

DRUGS (1)
  1. VOTRIENT [Suspect]
     Indication: UTERINE CANCER
     Dosage: 200MG UNKNOWN
     Route: 065
     Dates: start: 201309

REACTIONS (3)
  - Gastrooesophageal reflux disease [Unknown]
  - Decreased appetite [Not Recovered/Not Resolved]
  - Fatigue [Not Recovered/Not Resolved]
